FAERS Safety Report 5154134-7 (Version None)
Quarter: 2006Q4

REPORT INFORMATION
  Report Type: 
  Country: None (occurrence: None)
  Receive Date: 20061116
  Receipt Date: 20061116
  Transmission Date: 20070319
  Serious: Yes (Hospitalization)
  Sender: FDA-Public Use
  Company Number: None

PATIENT
  Sex: Male
  Weight: 83.4619 kg

DRUGS (4)
  1. OXALIPLATIN [Suspect]
     Indication: COLON CANCER METASTATIC
     Dosage: 256.1 MG. Q3W, IV
     Route: 042
     Dates: start: 20060913, end: 20061004
  2. BEVACIZUMAB [Suspect]
     Indication: COLON CANCER METASTATIC
     Dosage: 626.93 MG Q3W IV
     Route: 042
     Dates: start: 20060913, end: 20061004
  3. CLEOCIN T GEL [Concomitant]
  4. RESTORIL [Concomitant]

REACTIONS (8)
  - ABDOMINAL DISTENSION [None]
  - DEHYDRATION [None]
  - DIARRHOEA [None]
  - DRUG TOXICITY [None]
  - DYSPNOEA [None]
  - NAUSEA [None]
  - SMALL INTESTINAL OBSTRUCTION [None]
  - VOMITING [None]
